FAERS Safety Report 18496390 (Version 1)
Quarter: 2020Q4

REPORT INFORMATION
  Report Type: Spontaneous
  Country: FR (occurrence: FR)
  Receive Date: 20201112
  Receipt Date: 20201112
  Transmission Date: 20210114
  Serious: Yes (Hospitalization, Other)
  Sender: FDA-Public Use
  Company Number: FR-PFIZER INC-2020441114

PATIENT
  Age: 3 Year
  Sex: Female

DRUGS (1)
  1. PREGABALIN. [Suspect]
     Active Substance: PREGABALIN
     Dosage: 300 MG(FREQ:{TOTAL};300 MG, TOTAL(4 DF),21.3 MG/KG)
     Route: 048

REACTIONS (5)
  - Miosis [Recovered/Resolved]
  - Coma scale abnormal [Recovered/Resolved]
  - Ataxia [Recovered/Resolved]
  - Coma [Recovered/Resolved]
  - Accidental exposure to product by child [Recovered/Resolved]
